FAERS Safety Report 4388473-4 (Version None)
Quarter: 2004Q2

REPORT INFORMATION
  Report Type: 
  Country: None (occurrence: None)
  Receive Date: 20040625
  Receipt Date: 20040614
  Transmission Date: 20050107
  Serious: Yes (Hospitalization, Other)
  Sender: FDA-Public Use
  Company Number: US-JNJFOC-20040402647

PATIENT
  Age: 71 Year
  Sex: Female

DRUGS (6)
  1. DURAGESIC [Suspect]
     Indication: PAIN
     Dosage: TRANSDERMAL
     Route: 062
     Dates: start: 20040401, end: 20040401
  2. ATENOLOL [Concomitant]
  3. CARDURA (DOXAZOSIN MESILATE) TABLETS [Concomitant]
  4. HALCION (TRIAZOLAM) TABLETS [Concomitant]
  5. ALLEGRA 9FEXOFENADINE HYDROCHLORIDE) [Concomitant]
  6. ZOCOR [Concomitant]

REACTIONS (4)
  - DIZZINESS [None]
  - HEAD INJURY [None]
  - NAUSEA [None]
  - ROAD TRAFFIC ACCIDENT [None]
